FAERS Safety Report 8162059-8 (Version None)
Quarter: 2012Q1

REPORT INFORMATION
  Report Type: 
  Country: None (occurrence: None)
  Receive Date: 20120224
  Receipt Date: 20110615
  Transmission Date: 20120608
  Serious: No
  Sender: FDA-Public Use
  Company Number: US-BRISTOL-MYERS SQUIBB COMPANY-15821135

PATIENT
  Sex: Male

DRUGS (2)
  1. GLIPIZIDE [Suspect]
  2. METFORMIN HCL [Suspect]

REACTIONS (2)
  - GALLBLADDER DISORDER [None]
  - BLOOD GLUCOSE FLUCTUATION [None]
